FAERS Safety Report 14228654 (Version 1)
Quarter: 2017Q4

REPORT INFORMATION
  Report Type: Spontaneous
  Country: US (occurrence: US)
  Receive Date: 20171128
  Receipt Date: 20171128
  Transmission Date: 20180321
  Serious: Yes (Other)
  Sender: FDA-Public Use
  Company Number: US-ROCHE-2030203

PATIENT
  Sex: Female

DRUGS (2)
  1. XELODA [Suspect]
     Active Substance: CAPECITABINE
     Dosage: 2 PILLS IN MORNING AND 2 PILLS AT NIGHT
     Route: 048
  2. XELODA [Suspect]
     Active Substance: CAPECITABINE
     Indication: PRODUCT USED FOR UNKNOWN INDICATION
     Dosage: 3 PILLS IN MORNING, 3 PILLS AT NIGHT
     Route: 048

REACTIONS (2)
  - Lung neoplasm [Recovered/Resolved]
  - Gastrointestinal motility disorder [Not Recovered/Not Resolved]
